FAERS Safety Report 4464584-X (Version None)
Quarter: 2004Q3

REPORT INFORMATION
  Report Type: 
  Country: None (occurrence: None)
  Receive Date: 20040929
  Receipt Date: 20040916
  Transmission Date: 20050211
  Serious: Yes (Other)
  Sender: FDA-Public Use
  Company Number: 2004-120423-NL

PATIENT
  Age: 43 Year
  Sex: Female
  Weight: 54.4 kg

DRUGS (9)
  1. PUREGON [Suspect]
     Indication: INFERTILITY FEMALE
     Dosage: 150 IU DAILY
     Dates: start: 20030301
  2. PUREGON [Suspect]
     Indication: OVARIAN HYPERSTIMULATION SYNDROME
     Dosage: 150 IU DAILY
     Dates: start: 20030301
  3. PUREGON [Suspect]
     Indication: INFERTILITY FEMALE
     Dosage: 225 IU DAILY
     Dates: start: 20030601
  4. PUREGON [Suspect]
     Indication: OVARIAN HYPERSTIMULATION SYNDROME
     Dosage: 225 IU DAILY
     Dates: start: 20030601
  5. PUREGON [Suspect]
     Indication: INFERTILITY FEMALE
     Dosage: 300 IU DAILY
     Dates: start: 20030801
  6. PUREGON [Suspect]
     Indication: OVARIAN HYPERSTIMULATION SYNDROME
     Dosage: 300 IU DAILY
     Dates: start: 20030801
  7. PUREGON [Suspect]
     Indication: INFERTILITY FEMALE
     Dates: start: 20040501
  8. PUREGON [Suspect]
     Indication: OVARIAN HYPERSTIMULATION SYNDROME
     Dates: start: 20040501
  9. ALDOMET [Concomitant]

REACTIONS (1)
  - PARATHYROID TUMOUR BENIGN [None]
